FAERS Safety Report 4443687-X (Version None)
Quarter: 2004Q3

REPORT INFORMATION
  Report Type: 
  Country: None (occurrence: None)
  Receive Date: 20040908
  Receipt Date: 20040525
  Transmission Date: 20050211
  Serious: Yes (Hospitalization)
  Sender: FDA-Public Use
  Company Number: US-ROCHE-369072

PATIENT
  Age: 49 Year
  Sex: Female

DRUGS (6)
  1. CAPECITABINE [Suspect]
     Indication: BREAST CANCER
     Dosage: ADMINISTERED FOR 14 DAYS FOLLOWED BY 7 DAYS REST.
     Route: 048
     Dates: start: 20040408, end: 20040422
  2. CAPECITABINE [Suspect]
     Dosage: GIVEN FOR 14 DAYS FOLLOWED BY 7 DAYS REST.
     Route: 048
     Dates: start: 20040520
  3. IXABEPILONE [Suspect]
     Indication: BREAST CANCER
     Route: 042
     Dates: start: 20040408, end: 20040428
  4. IXABEPILONE [Suspect]
     Route: 042
     Dates: start: 20040519
  5. BENADRYL [Concomitant]
     Dates: start: 20040428, end: 20040428
  6. ZANTAC [Concomitant]
     Dates: start: 20040428, end: 20040428

REACTIONS (11)
  - ABDOMINAL PAIN [None]
  - ALOPECIA [None]
  - CYSTITIS HAEMORRHAGIC [None]
  - DERMATITIS EXFOLIATIVE [None]
  - DILATATION VENTRICULAR [None]
  - ENTEROCOCCAL INFECTION [None]
  - LUNG INFILTRATION [None]
  - METASTASES TO LUNG [None]
  - NEPHROLITHIASIS [None]
  - PALMAR-PLANTAR ERYTHRODYSAESTHESIA SYNDROME [None]
  - RESPIRATORY FAILURE [None]
